FAERS Safety Report 6220725-5 (Version None)
Quarter: 2009Q2

REPORT INFORMATION
  Report Type: 
  Country: None (occurrence: None)
  Receive Date: 20090610
  Receipt Date: 20090529
  Transmission Date: 20091009
  Serious: Yes (Other)
  Sender: FDA-Public Use
  Company Number: PHHY2009IT21473

PATIENT
  Sex: Male

DRUGS (2)
  1. EXJADE [Suspect]
     Indication: IRON OVERLOAD
     Dosage: 30MG/KG/DAY
     Route: 048
     Dates: start: 20090201, end: 20090520
  2. ACETYLSALICYLIC ACID SRT [Concomitant]
     Dosage: 100 MG, UNK
     Route: 065

REACTIONS (1)
  - BILIARY COLIC [None]
